FAERS Safety Report 4914347-3 (Version None)
Quarter: 2006Q1

REPORT INFORMATION
  Report Type: 
  Country: None (occurrence: None)
  Receive Date: 20060213
  Receipt Date: 20060206
  Transmission Date: 20060701
  Serious: Yes (Death, Hospitalization)
  Sender: FDA-Public Use
  Company Number: 2005-11-0249

PATIENT
  Age: 37 Year
  Sex: Male
  Weight: 81.6475 kg

DRUGS (3)
  1. TEMODAR [Suspect]
     Indication: BRAIN NEOPLASM
     Dosage: QD X5D QMTH ORAL
     Route: 048
     Dates: start: 20040801, end: 20041201
  2. DEXAMETHASONE SODIUM PHOSPHATE [Concomitant]
  3. WARFARIN [Concomitant]

REACTIONS (4)
  - BRAIN HERNIATION [None]
  - BRAIN NEOPLASM [None]
  - CONVULSION [None]
  - HYDROCEPHALUS [None]
